FAERS Safety Report 16548542 (Version 2)
Quarter: 2019Q3

REPORT INFORMATION
  Report Type: Report from Study
  Country: GB (occurrence: GB)
  Receive Date: 20190709
  Receipt Date: 20190711
  Transmission Date: 20191004
  Serious: Yes (Hospitalization)
  Sender: FDA-Public Use
  Company Number: GB-MYLANLABS-2019M1064038

PATIENT
  Age: 64 Year
  Sex: Female

DRUGS (19)
  1. PERTUZUMAB. [Suspect]
     Active Substance: PERTUZUMAB
     Dosage: 420 MILLIGRAM, Q3W
     Route: 042
     Dates: start: 20170915
  2. LANSOPRAZOLE. [Concomitant]
     Active Substance: LANSOPRAZOLE
     Dosage: 30 MILLIGRAM, PRN
     Route: 048
  3. AMLODIPINE [Concomitant]
     Active Substance: AMLODIPINE BESYLATE
     Indication: HYPERTENSION
     Dosage: 5 MILLIGRAM, QD
     Route: 048
  4. DOCETAXEL. [Suspect]
     Active Substance: DOCETAXEL
     Indication: BREAST CANCER METASTATIC
     Dosage: 108 MILLIGRAM, Q3W, NUMBER OF CYCLED PER REGIMEN WAS 6
     Route: 042
     Dates: start: 20170825, end: 20170915
  5. DOCETAXEL. [Suspect]
     Active Substance: DOCETAXEL
     Dosage: 96 MILLIGRAM, Q3W, NUMBER OF CYCLED PER REGIMEN WAS 6
     Route: 042
     Dates: start: 20170915, end: 20171208
  6. E45 [Concomitant]
     Active Substance: LANOLIN\LIGHT MINERAL OIL\PARAFFIN
     Indication: RASH PRURITIC
     Dosage: UNK, PRN
     Route: 061
     Dates: start: 20180810
  7. ANUSOL                             /08601001/ [Concomitant]
     Indication: HAEMORRHOIDS
     Dosage: UNK, PRN
     Route: 061
     Dates: start: 20180504
  8. TRASTUZUMAB. [Suspect]
     Active Substance: TRASTUZUMAB
     Dosage: 504 MILLIGRAM, Q3W
     Route: 042
     Dates: start: 20180209
  9. SALBUTAMOL [Concomitant]
     Active Substance: ALBUTEROL
     Dosage: 2 PUFF, PRN
     Route: 055
  10. MENTHOL. [Concomitant]
     Active Substance: MENTHOL
     Indication: RASH PRURITIC
     Dosage: UNK, PRN
     Route: 061
     Dates: start: 20180810
  11. TRASTUZUMAB. [Suspect]
     Active Substance: TRASTUZUMAB
     Dosage: 483 MILLIGRAM, Q3W
     Route: 042
     Dates: start: 20170915, end: 20180209
  12. ALENDRONIC ACID [Concomitant]
     Active Substance: ALENDRONIC ACID
     Indication: PROPHYLAXIS
     Dosage: 70 MILLIGRAM, QW
     Route: 048
  13. SERTRALINE [Concomitant]
     Active Substance: SERTRALINE HYDROCHLORIDE
     Indication: DEPRESSION
     Dosage: 100 MILLIGRAM, QD
     Route: 048
  14. PIRITON [Concomitant]
     Active Substance: CHLORPHENIRAMINE MALEATE
     Indication: RASH
     Dosage: 4 MILLIGRAM, PRN
     Route: 048
     Dates: start: 20180504
  15. PERTUZUMAB. [Suspect]
     Active Substance: PERTUZUMAB
     Indication: BREAST CANCER METASTATIC
     Dosage: 840 MILLIGRAM, Q3W
     Route: 042
     Dates: start: 20170824, end: 20170824
  16. EXEMESTANE. [Suspect]
     Active Substance: EXEMESTANE
     Indication: BREAST CANCER METASTATIC
     Dosage: 25 MILLIGRAM, QD
     Route: 042
     Dates: start: 20180209
  17. ADCAL D3 [Concomitant]
     Active Substance: CALCIUM CARBONATE\CHOLECALCIFEROL
     Dosage: I TABLET
     Route: 048
     Dates: start: 20170825
  18. TRASTUZUMAB. [Suspect]
     Active Substance: TRASTUZUMAB
     Indication: BREAST CANCER METASTATIC
     Dosage: 630 MILLIGRAM, Q3W
     Route: 042
     Dates: start: 20170825, end: 20170825
  19. DENOSUMAB [Concomitant]
     Active Substance: DENOSUMAB
     Dosage: 120 MILLIGRAM, MONTHLY
     Route: 058
     Dates: start: 20180706

REACTIONS (1)
  - Pleuritic pain [Recovered/Resolved]

NARRATIVE: CASE EVENT DATE: 20190117
